FAERS Safety Report 10209925 (Version 2)
Quarter: 2014Q2

REPORT INFORMATION
  Report Type: Spontaneous
  Country: DE (occurrence: DE)
  Receive Date: 20140602
  Receipt Date: 20140602
  Transmission Date: 20141212
  Serious: Yes (Hospitalization)
  Sender: FDA-Public Use
  Company Number: DE-JNJFOC-20140305383

PATIENT
  Age: 87 Year
  Sex: Female
  Weight: 68 kg

DRUGS (10)
  1. XARELTO [Suspect]
     Indication: CEREBROVASCULAR ACCIDENT PROPHYLAXIS
     Route: 048
     Dates: start: 20121112, end: 20140207
  2. XARELTO [Suspect]
     Indication: ATRIAL FIBRILLATION
     Route: 048
     Dates: start: 20121112, end: 20140207
  3. BISOPROLOL [Concomitant]
     Route: 065
  4. CORDAREX [Concomitant]
     Route: 065
  5. L-THYROXIN [Concomitant]
     Route: 065
  6. PANTOZOL [Concomitant]
     Route: 065
  7. COLECALCIFEROL [Concomitant]
     Dosage: 20000 U
     Route: 065
  8. MOVICOL [Concomitant]
     Route: 065
  9. NOVALGIN [Concomitant]
     Route: 065
  10. UNACID [Concomitant]
     Route: 065

REACTIONS (3)
  - Traumatic haemorrhage [Recovering/Resolving]
  - Skin necrosis [Recovering/Resolving]
  - Fall [Recovering/Resolving]
